FAERS Safety Report 8255651-3 (Version None)
Quarter: 2012Q2

REPORT INFORMATION
  Report Type: 
  Country: None (occurrence: None)
  Receive Date: 20120403
  Receipt Date: 20120326
  Transmission Date: 20120825
  Serious: Yes (Hospitalization, Other)
  Sender: FDA-Public Use
  Company Number: PHEH2012US004414

PATIENT
  Sex: Female
  Weight: 50.794 kg

DRUGS (20)
  1. MEROPENEM [Concomitant]
     Indication: CYSTIC FIBROSIS
     Dosage: 2G IV Q8H
     Dates: start: 20061115
  2. M.V.I. [Concomitant]
     Dosage: QDAY
  3. TOBI [Suspect]
     Indication: CYSTIC FIBROSIS
     Dosage: 520 MG, QD
     Route: 042
     Dates: start: 20061115
  4. CIPROFLOXACIN HCL [Concomitant]
     Indication: COUGH
  5. NF [Concomitant]
     Dosage: 1 DF, WITH MEALS BY MOUTH
  6. ALBUTEROL [Concomitant]
     Dosage: 2 PUFFS EVERY 8 HRS
  7. ADVAIR DISKUS 100/50 [Concomitant]
     Dosage: 250/50 INH BID
  8. FLUTICASONE PROPIONATE/SALMETEROL [Concomitant]
     Dosage: 500 MCG-50 MCG/PUFF 1 PUFF TWICE A DAY
  9. HYPERTONIC [Concomitant]
  10. SODIUM CHLORIDE [Concomitant]
     Dosage: 5 ML, EVERY 12 HRS
  11. ZITHROMAX [Concomitant]
     Dosage: 500 MG, QD
     Route: 048
  12. CREON ENZYMES [Concomitant]
     Dosage: UNK
  13. TOBI [Suspect]
     Dosage: 300MG/5 ML INHALATION
  14. BACTRIM [Concomitant]
     Indication: COUGH
  15. ADEKS [Concomitant]
     Dosage: 1 DF, QD
     Route: 048
  16. ULTRASE MT20 [Concomitant]
     Dosage: 3 DF, WITH MEALS BY MOUTH
  17. ZOSYN [Concomitant]
     Dosage: EVERY 4 HRS FOR 12 DAYS
     Route: 042
  18. CAYSTON [Concomitant]
  19. PULMOZYME [Concomitant]
     Dosage: 2.5 MG, UNK
  20. LO/OVRAL [Concomitant]
     Dosage: 1 DF, UNK

REACTIONS (20)
  - PNEUMONIA [None]
  - PRODUCTIVE COUGH [None]
  - RALES [None]
  - INFECTIVE PULMONARY EXACERBATION OF CYSTIC FIBROSIS [None]
  - SPUTUM DISCOLOURED [None]
  - DYSPNOEA EXERTIONAL [None]
  - SPUTUM INCREASED [None]
  - DECREASED APPETITE [None]
  - TACHYCARDIA [None]
  - DYSPNOEA [None]
  - FORCED EXPIRATORY VOLUME DECREASED [None]
  - LUNG DISORDER [None]
  - NASAL CONGESTION [None]
  - INCORRECT ROUTE OF DRUG ADMINISTRATION [None]
  - FATIGUE [None]
  - FEELING ABNORMAL [None]
  - COUGH [None]
  - WEIGHT DECREASED [None]
  - PULMONARY FUNCTION TEST ABNORMAL [None]
  - WHEEZING [None]
